FAERS Safety Report 10909089 (Version 1)
Quarter: 2015Q1

REPORT INFORMATION
  Report Type: Spontaneous
  Country: US (occurrence: US)
  Receive Date: 20150312
  Receipt Date: 20150312
  Transmission Date: 20150721
  Serious: No
  Sender: FDA-Public Use
  Company Number: US-SA-2014SA034645

PATIENT
  Age: 77 Year
  Sex: Male

DRUGS (1)
  1. NASACORT ALLERGY 24HR [Suspect]
     Active Substance: TRIAMCINOLONE ACETONIDE
     Indication: NASAL CONGESTION
     Dosage: FREQUENCY: 2PUFFS EACH DOSE:2 PUFF(S)
     Route: 065
     Dates: start: 20140309, end: 20140313

REACTIONS (3)
  - Pain [Not Recovered/Not Resolved]
  - Nasal obstruction [Not Recovered/Not Resolved]
  - Dysphagia [Not Recovered/Not Resolved]
